FAERS Safety Report 7679074-0 (Version None)
Quarter: 2011Q3

REPORT INFORMATION
  Report Type: 
  Country: None (occurrence: None)
  Receive Date: 20110812
  Receipt Date: 20110804
  Transmission Date: 20111222
  Serious: Yes (Other)
  Sender: FDA-Public Use
  Company Number: US-AMGEN-USASP2011038567

PATIENT
  Age: 84 Year
  Sex: Female
  Weight: 69 kg

DRUGS (3)
  1. CORTICOSTEROIDS [Concomitant]
  2. NPLATE [Suspect]
     Indication: IDIOPATHIC THROMBOCYTOPENIC PURPURA
     Dosage: 100 A?G, QWK
     Route: 058
     Dates: start: 20090804
  3. WINRHO [Concomitant]

REACTIONS (1)
  - MYELODYSPLASTIC SYNDROME [None]
